FAERS Safety Report 6206595-X (Version None)
Quarter: 2009Q2

REPORT INFORMATION
  Report Type: 
  Country: None (occurrence: None)
  Receive Date: 20090527
  Receipt Date: 20090527
  Transmission Date: 20091009
  Serious: No
  Sender: FDA-Public Use
  Company Number: None

PATIENT
  Age: 52 Year
  Sex: Female
  Weight: 88.4514 kg

DRUGS (2)
  1. BONIVA [Suspect]
     Indication: OSTEOPENIA
     Dosage: MONTHLY
     Dates: start: 20080614, end: 20080614
  2. BONIVA [Suspect]
     Indication: OSTEOPENIA
     Dosage: MONTHLY
     Dates: start: 20080714, end: 20080714

REACTIONS (1)
  - BACK PAIN [None]
